FAERS Safety Report 22110288 (Version 1)
Quarter: 2023Q1

REPORT INFORMATION
  Report Type: Spontaneous
  Country: FR (occurrence: None)
  Receive Date: 20230317
  Receipt Date: 20230317
  Transmission Date: 20230418
  Serious: Yes (Other)
  Sender: FDA-Public Use
  Company Number: 2023A057245

PATIENT
  Age: 67 Year
  Sex: Female
  Weight: 56.5 kg

DRUGS (3)
  1. IMFINZI [Suspect]
     Active Substance: DURVALUMAB
     Indication: Lung adenocarcinoma
     Dosage: 550.0MG UNKNOWN
     Route: 042
     Dates: start: 20210204, end: 20210304
  2. NICARDIPINE HYDROCHLORIDE [Suspect]
     Active Substance: NICARDIPINE HYDROCHLORIDE
     Indication: Hypertension
     Dosage: 20 MG MORNING AND EVENING
     Route: 048
     Dates: start: 20200911, end: 20210323
  3. ETIFOXINE [Suspect]
     Active Substance: ETIFOXINE
     Indication: Anxiety
     Dosage: 50 MG MORNING, NOON AND EVENING
     Route: 048
     Dates: start: 20201202, end: 20210323

REACTIONS (1)
  - Mixed liver injury [Recovered/Resolved]

NARRATIVE: CASE EVENT DATE: 20210315
